FAERS Safety Report 8184364-1 (Version None)
Quarter: 2012Q1

REPORT INFORMATION
  Report Type: 
  Country: None (occurrence: None)
  Receive Date: 20120305
  Receipt Date: 20120221
  Transmission Date: 20120608
  Serious: Yes (Hospitalization, Other)
  Sender: FDA-Public Use
  Company Number: US-ELI_LILLY_AND_COMPANY-US201202006454

PATIENT
  Sex: Female

DRUGS (8)
  1. CYMBALTA [Suspect]
     Indication: ARTHRITIS
     Dosage: 30 MG, QD
     Dates: start: 20080101
  2. IRON [Concomitant]
  3. SYNTHROID [Concomitant]
  4. CLONIDINE [Concomitant]
  5. SEROQUEL [Concomitant]
  6. GEODON [Concomitant]
  7. KLONOPIN [Concomitant]
  8. LITHIUM CARBONATE [Concomitant]

REACTIONS (4)
  - GLYCOSYLATED HAEMOGLOBIN INCREASED [None]
  - TYPE 1 DIABETES MELLITUS [None]
  - DIABETIC KETOACIDOSIS [None]
  - BLOOD GLUCOSE INCREASED [None]
